FAERS Safety Report 5362560-6 (Version None)
Quarter: 2007Q2

REPORT INFORMATION
  Report Type: 
  Country: None (occurrence: None)
  Receive Date: 20070619
  Receipt Date: 20070615
  Transmission Date: 20071010
  Serious: Yes (Hospitalization)
  Sender: FDA-Public Use
  Company Number: US-BOEHRINGER INGELHEIM PHARMACEUTICALS, INC.-2007-BP-09705BP

PATIENT
  Sex: Female

DRUGS (7)
  1. MICARDIS HCT [Suspect]
     Route: 048
  2. SYNTHROID [Concomitant]
     Route: 048
  3. PREMARIN [Concomitant]
     Route: 048
  4. LEXAPRO [Concomitant]
     Route: 048
  5. NORVASC [Concomitant]
     Route: 048
  6. DITROPAN [Concomitant]
     Route: 048
  7. PRILOSEC [Concomitant]
     Route: 048

REACTIONS (3)
  - CHEST DISCOMFORT [None]
  - CHEST PAIN [None]
  - NAUSEA [None]
